FAERS Safety Report 23288011 (Version 2)
Quarter: 2023Q4

REPORT INFORMATION
  Report Type: Spontaneous
  Country: FR (occurrence: FR)
  Receive Date: 20231212
  Receipt Date: 20231218
  Transmission Date: 20240110
  Serious: Yes (Other)
  Sender: FDA-Public Use
  Company Number: None

PATIENT
  Age: 59 Year
  Sex: Female

DRUGS (4)
  1. KINERET [Suspect]
     Active Substance: ANAKINRA
     Indication: Familial mediterranean fever
     Dosage: PRE-FILLED SYRINGE INJECTABLE SOLUTION
     Dates: end: 20230704
  2. KINERET [Suspect]
     Active Substance: ANAKINRA
     Dosage: PRE-FILLED SYRINGE INJECTABLE SOLUTION
     Dates: end: 20230527
  3. KINERET [Suspect]
     Active Substance: ANAKINRA
     Dosage: PRE-FILLED SYRINGE INJECTABLE SOLUTION
  4. RUXOLITINIB [Concomitant]
     Active Substance: RUXOLITINIB
     Indication: Myelofibrosis
     Dates: start: 20180703

REACTIONS (3)
  - Vertigo [Recovered/Resolved]
  - Tinnitus [Recovered/Resolved]
  - Injection site reaction [Recovered/Resolved]

NARRATIVE: CASE EVENT DATE: 20230517
